FAERS Safety Report 14300382 (Version 1)
Quarter: 2017Q4

REPORT INFORMATION
  Report Type: Spontaneous
  Country: US (occurrence: US)
  Receive Date: 20171219
  Receipt Date: 20171219
  Transmission Date: 20180321
  Serious: No
  Sender: FDA-Public Use
  Company Number: US-PFIZER INC-2017536741

PATIENT
  Age: 84 Year
  Sex: Female
  Weight: 52.15 kg

DRUGS (3)
  1. ZITHROMAX [Concomitant]
     Active Substance: AZITHROMYCIN DIHYDRATE
     Indication: SINUSITIS
     Dosage: UNKNOWN ^Z-PACK, HAS TAKEN 3 OUT OF 6 TABLETS^
     Dates: start: 20171213
  2. ALAVERT ALLERGY [Suspect]
     Active Substance: LORATADINE
     Indication: HYPERSENSITIVITY
     Dosage: 1 TABLET A DAY
     Dates: start: 2017
  3. ALAVERT ALLERGY [Suspect]
     Active Substance: LORATADINE
     Indication: NASOPHARYNGITIS

REACTIONS (1)
  - Drug ineffective [Recovering/Resolving]
